FAERS Safety Report 9013004 (Version 1)
Quarter: 2013Q1

REPORT INFORMATION
  Report Type: Spontaneous
  Country: US (occurrence: US)
  Receive Date: 20130114
  Receipt Date: 20130114
  Transmission Date: 20140127
  Serious: No
  Sender: FDA-Public Use
  Company Number: US-BAYER-2013-004636

PATIENT
  Sex: Female

DRUGS (1)
  1. MAGNEVIST [Suspect]

REACTIONS (1)
  - Accidental exposure to product [None]
